FAERS Safety Report 5652673-3 (Version None)
Quarter: 2008Q1

REPORT INFORMATION
  Report Type: 
  Country: None (occurrence: None)
  Receive Date: 20080305
  Receipt Date: 20080305
  Transmission Date: 20080703
  Serious: Yes (Hospitalization)
  Sender: FDA-Public Use
  Company Number: None

PATIENT
  Sex: Female
  Weight: 64.4108 kg

DRUGS (1)
  1. VIVITROL [Suspect]
     Indication: ALCOHOLISM
     Dosage: ONE DOSE EVERY 30 DAYS IM ONE SHOT
     Route: 030
     Dates: start: 20061010

REACTIONS (5)
  - HYPOAESTHESIA [None]
  - INCISION SITE COMPLICATION [None]
  - INJECTION SITE NECROSIS [None]
  - INJECTION SITE PAIN [None]
  - MUSCLE SPASMS [None]
